FAERS Safety Report 26044626 (Version 1)
Quarter: 2025Q4

REPORT INFORMATION
  Report Type: Spontaneous
  Country: US (occurrence: US)
  Receive Date: 20251114
  Receipt Date: 20251114
  Transmission Date: 20260118
  Serious: No
  Sender: ELI LILLY AND COMPANY
  Company Number: US-ELI_LILLY_AND_COMPANY-US202511015123

PATIENT
  Age: 39 Year
  Sex: Female

DRUGS (1)
  1. ZEPBOUND [Suspect]
     Active Substance: TIRZEPATIDE
     Indication: Weight control
     Dosage: 7.5 MG, UNKNOWN
     Route: 058
     Dates: start: 20251018

REACTIONS (6)
  - Pain [Unknown]
  - Lymph node pain [Unknown]
  - Lymphadenopathy [Unknown]
  - Urticaria [Unknown]
  - Hypoaesthesia oral [Unknown]
  - Fatigue [Unknown]

NARRATIVE: CASE EVENT DATE: 20251105
